FAERS Safety Report 14033961 (Version 1)
Quarter: 2017Q4

REPORT INFORMATION
  Report Type: Spontaneous
  Country: US (occurrence: US)
  Receive Date: 20171003
  Receipt Date: 20171003
  Transmission Date: 20180321
  Serious: Yes (Other)
  Sender: FDA-Public Use
  Company Number: US-SA-2017SA185077

PATIENT
  Sex: Female

DRUGS (5)
  1. AMBRISENTAN [Suspect]
     Active Substance: AMBRISENTAN
     Route: 065
     Dates: start: 20170221
  2. REVATIO [Concomitant]
     Active Substance: SILDENAFIL CITRATE
  3. OXYGEN. [Concomitant]
     Active Substance: OXYGEN
  4. OXYCODONE [Concomitant]
     Active Substance: OXYCODONE
  5. AMBIEN [Suspect]
     Active Substance: ZOLPIDEM TARTRATE
     Route: 048

REACTIONS (28)
  - Peripheral swelling [Not Recovered/Not Resolved]
  - Lung operation [Unknown]
  - Vocal cord paralysis [Unknown]
  - Feeling abnormal [Not Recovered/Not Resolved]
  - Glaucoma [Not Recovered/Not Resolved]
  - Joint swelling [Not Recovered/Not Resolved]
  - Feeding disorder [Not Recovered/Not Resolved]
  - Pulmonary mass [Not Recovered/Not Resolved]
  - Vitamin D decreased [Not Recovered/Not Resolved]
  - Pain [Not Recovered/Not Resolved]
  - Memory impairment [Not Recovered/Not Resolved]
  - Fall [Unknown]
  - Drug dose omission [Unknown]
  - Gait disturbance [Not Recovered/Not Resolved]
  - Influenza like illness [Not Recovered/Not Resolved]
  - Diarrhoea [Not Recovered/Not Resolved]
  - Vomiting [Not Recovered/Not Resolved]
  - Weight decreased [Unknown]
  - Bedridden [Unknown]
  - Terminal state [Unknown]
  - Malaise [Unknown]
  - Pneumonia [Unknown]
  - Rotator cuff syndrome [Not Recovered/Not Resolved]
  - Vitamin B complex deficiency [Not Recovered/Not Resolved]
  - Brain natriuretic peptide abnormal [Unknown]
  - Cardiac disorder [Unknown]
  - Insomnia [Not Recovered/Not Resolved]
  - Fluid retention [Unknown]

NARRATIVE: CASE EVENT DATE: 20170706
